FAERS Safety Report 10555392 (Version 4)
Quarter: 2015Q1

REPORT INFORMATION
  Report Type: Spontaneous
  Country: US (occurrence: US)
  Receive Date: 20141030
  Receipt Date: 20150327
  Transmission Date: 20150720
  Serious: Yes (Hospitalization)
  Sender: FDA-Public Use
  Company Number: US-BAYER-2014-159263

PATIENT
  Age: 28 Year
  Sex: Female
  Weight: 79.37 kg

DRUGS (2)
  1. ALBUTEROL. [Concomitant]
     Active Substance: ALBUTEROL
     Dosage: UNK
     Dates: start: 20111025
  2. MIRENA [Suspect]
     Active Substance: LEVONORGESTREL
     Indication: CONTRACEPTION
     Dosage: 20 MCG/24HR, CONT
     Route: 015
     Dates: start: 20080725, end: 20111025

REACTIONS (15)
  - Abdominal pain lower [Not Recovered/Not Resolved]
  - Anxiety [None]
  - Sexual dysfunction [None]
  - Injury [Not Recovered/Not Resolved]
  - Uterine perforation [Not Recovered/Not Resolved]
  - Hysterectomy [None]
  - Device dislocation [Not Recovered/Not Resolved]
  - Depression [None]
  - Infection [None]
  - Abdominal pain [Not Recovered/Not Resolved]
  - Emotional distress [None]
  - Menorrhagia [None]
  - Cyst [None]
  - Fear [None]
  - Dyspareunia [Not Recovered/Not Resolved]

NARRATIVE: CASE EVENT DATE: 20090122
